FAERS Safety Report 9950539 (Version 1)
Quarter: 2014Q1

REPORT INFORMATION
  Report Type: Report from Study
  Country: US (occurrence: US)
  Receive Date: 20140304
  Receipt Date: 20140304
  Transmission Date: 20141002
  Serious: No
  Sender: FDA-Public Use
  Company Number: US-ABBVIE-13P-163-1071332-00

PATIENT
  Age: 64 Year
  Sex: Female
  Weight: 85.81 kg

DRUGS (4)
  1. HUMIRA [Suspect]
     Indication: PSORIASIS
     Dates: start: 20130324, end: 20130324
  2. HUMIRA [Suspect]
     Indication: ARTHRITIS
     Dates: start: 20130331
  3. NEXIUM [Concomitant]
     Indication: GASTRITIS
  4. NEXIUM [Concomitant]
     Indication: GASTROOESOPHAGEAL REFLUX DISEASE

REACTIONS (1)
  - Injection site pain [Recovered/Resolved]
